FAERS Safety Report 4703052-4 (Version None)
Quarter: 2005Q2

REPORT INFORMATION
  Report Type: 
  Country: None (occurrence: None)
  Receive Date: 20050628
  Receipt Date: 20050628
  Transmission Date: 20051028
  Serious: Yes (Hospitalization)
  Sender: FDA-Public Use
  Company Number: None

PATIENT
  Age: 77 Year

DRUGS (9)
  1. DIGOXIN [Suspect]
     Indication: ATRIAL FIBRILLATION
     Dosage: 0.25 MG DAILY
     Dates: end: 20050329
  2. DIGOXIN [Suspect]
     Indication: CARDIAC FAILURE CONGESTIVE
     Dosage: 0.25 MG DAILY
     Dates: end: 20050329
  3. NEXIUM [Concomitant]
  4. AMARYL [Concomitant]
  5. ALPRAZOLAM [Concomitant]
  6. LISINOPRIL [Concomitant]
  7. PAROXETINE HCL [Concomitant]
  8. COLCHINCINE [Concomitant]
  9. VICODIN [Concomitant]

REACTIONS (9)
  - ASTHENIA [None]
  - BRADYARRHYTHMIA [None]
  - DEHYDRATION [None]
  - DRUG LEVEL INCREASED [None]
  - DYSPNOEA [None]
  - HEART RATE DECREASED [None]
  - HYPOTENSION [None]
  - RENAL FAILURE [None]
  - TACHYARRHYTHMIA [None]
